FAERS Safety Report 19655386 (Version 1)
Quarter: 2021Q3

REPORT INFORMATION
  Report Type: Report from Study
  Country: US (occurrence: US)
  Receive Date: 20210804
  Receipt Date: 20210804
  Transmission Date: 20211014
  Serious: No
  Sender: FDA-Public Use
  Company Number: US-BIOVITRUM-2021US6980

PATIENT
  Age: 3 Year
  Sex: Female

DRUGS (7)
  1. HYDROXYZINE [Concomitant]
     Active Substance: HYDROXYZINE HYDROCHLORIDE
  2. KINERET [Suspect]
     Active Substance: ANAKINRA
     Indication: CRYOPYRIN ASSOCIATED PERIODIC SYNDROME
     Route: 058
     Dates: start: 20210709
  3. ZYRTEC [Concomitant]
     Active Substance: CETIRIZINE HYDROCHLORIDE
  4. IRON SUPPLEMENT [Concomitant]
     Active Substance: IRON
  5. COLCHICINE. [Concomitant]
     Active Substance: COLCHICINE
  6. MELOXICAM. [Concomitant]
     Active Substance: MELOXICAM
  7. PEPCID [Concomitant]
     Active Substance: FAMOTIDINE

REACTIONS (7)
  - Eczema [Unknown]
  - Discomfort [Recovering/Resolving]
  - Injection site erythema [Unknown]
  - Injection site mass [Unknown]
  - Off label use [Not Recovered/Not Resolved]
  - Injection site bruising [Unknown]
  - Rash pruritic [Unknown]

NARRATIVE: CASE EVENT DATE: 20210709
